FAERS Safety Report 9125514 (Version 3)
Quarter: 2015Q3

REPORT INFORMATION
  Report Type: Report from Study
  Country: GB (occurrence: GB)
  Receive Date: 20130227
  Receipt Date: 20150707
  Transmission Date: 20151125
  Serious: Yes (Hospitalization)
  Sender: FDA-Public Use
  Company Number: GB-GLAXOSMITHKLINE-B0870663A

PATIENT
  Age: 50 Year
  Sex: Male
  Weight: 107 kg

DRUGS (8)
  1. NELARABINE [Suspect]
     Active Substance: NELARABINE
     Indication: ACUTE LYMPHOCYTIC LEUKAEMIA
     Dosage: 3120 MG, QD
     Route: 042
     Dates: start: 20130206, end: 20130208
  2. ALLOPURINOL. [Concomitant]
     Active Substance: ALLOPURINOL
     Indication: NEOPLASM PROPHYLAXIS
     Dosage: 100 MG, QD
     Route: 048
     Dates: start: 20121114
  3. ONDANSETRON [Concomitant]
     Active Substance: ONDANSETRON
     Indication: MALAISE
     Dosage: 8 MG, PRN
     Route: 048
     Dates: start: 20121119
  4. OMEPRAZOLE. [Concomitant]
     Active Substance: OMEPRAZOLE
     Indication: PROPHYLAXIS
     Dosage: 40 MG, QD
     Route: 048
     Dates: start: 20121216
  5. DOMPERIDONE [Concomitant]
     Active Substance: DOMPERIDONE
     Indication: MALAISE
     Dosage: 10 MG, QID
     Route: 048
     Dates: start: 20121119
  6. MINOXIDIL. [Concomitant]
     Active Substance: MINOXIDIL
     Route: 048
  7. FRUSEMIDE [Concomitant]
     Active Substance: FUROSEMIDE
     Route: 048
  8. VORICONAZOLE. [Concomitant]
     Active Substance: VORICONAZOLE
     Indication: ANTIFUNGAL TREATMENT
     Dosage: 200 MG, QD
     Route: 048
     Dates: start: 20130130, end: 20130219

REACTIONS (1)
  - Myositis [Not Recovered/Not Resolved]

NARRATIVE: CASE EVENT DATE: 20130212
